FAERS Safety Report 9940944 (Version 2)
Quarter: 2014Q1

REPORT INFORMATION
  Report Type: Spontaneous
  Country: FR (occurrence: FR)
  Receive Date: 20140303
  Receipt Date: 20140321
  Transmission Date: 20141002
  Serious: No
  Sender: FDA-Public Use
  Company Number: FR-PFIZER INC-2014057653

PATIENT
  Age: 27 Year
  Sex: Female
  Weight: 58 kg

DRUGS (5)
  1. CELEBREX [Suspect]
     Indication: RHEUMATOID ARTHRITIS
     Dosage: 200 MG, 2X/DAY
     Route: 048
     Dates: start: 20140224, end: 20140228
  2. INEXIUM /01479302/ [Concomitant]
     Dosage: 20 MG, 1X/DAY
     Route: 048
     Dates: start: 20140224, end: 20140228
  3. UVEDOSE [Concomitant]
     Dosage: 100000 IU, EVERY FORTNIGHT
     Route: 048
     Dates: start: 20140224
  4. THIOCOLCHICOSIDE [Concomitant]
     Dosage: 4 MG, 2X/DAY
     Dates: start: 20140214, end: 20140224
  5. DAFALGAN [Concomitant]
     Dosage: 2 DF, 3X/DAY
     Route: 048
     Dates: start: 20140214, end: 20140224

REACTIONS (3)
  - Herpes dermatitis [Recovered/Resolved]
  - Pain [Unknown]
  - Pruritus [Unknown]
